FAERS Safety Report 11431098 (Version 1)
Quarter: 2015Q3

REPORT INFORMATION
  Report Type: Spontaneous
  Country: PH (occurrence: PH)
  Receive Date: 20150828
  Receipt Date: 20150828
  Transmission Date: 20151125
  Serious: Yes (Other)
  Sender: FDA-Public Use
  Company Number: PH-ABBVIE-15P-128-1450107-00

PATIENT
  Age: 40 Year
  Sex: Female

DRUGS (3)
  1. SEVOFLURANE. [Suspect]
     Active Substance: SEVOFLURANE
     Indication: THYROIDECTOMY
  2. ISOFLURANE. [Concomitant]
     Active Substance: ISOFLURANE
     Indication: ANAESTHESIA
     Dates: start: 20150813, end: 20150813
  3. SEVOFLURANE. [Suspect]
     Active Substance: SEVOFLURANE
     Indication: GENERAL ANAESTHESIA
     Dosage: SEVOFLURANE AT SETTING 4 OF VAPOURIZER VIA GAS INHALATION
     Route: 055
     Dates: start: 20150813, end: 20150813

REACTIONS (5)
  - Hypertension [Recovered/Resolved]
  - Suspected counterfeit product [Unknown]
  - Drug ineffective [Recovered/Resolved]
  - Pain [Recovered/Resolved]
  - Tachycardia [Recovered/Resolved]

NARRATIVE: CASE EVENT DATE: 20150813
